FAERS Safety Report 10863818 (Version 1)
Quarter: 2015Q1

REPORT INFORMATION
  Report Type: Spontaneous
  Country: DE (occurrence: JP)
  Receive Date: 20150223
  Receipt Date: 20150223
  Transmission Date: 20150721
  Serious: Yes (Hospitalization)
  Sender: FDA-Public Use
  Company Number: JP-FRI-1000074637

PATIENT
  Sex: Female

DRUGS (12)
  1. LIVALO [Concomitant]
     Active Substance: PITAVASTATIN CALCIUM
  2. ARICEPT [Concomitant]
     Active Substance: DONEPEZIL HYDROCHLORIDE
  3. MICARDIS [Concomitant]
     Active Substance: TELMISARTAN
  4. TAKEPRON [Concomitant]
     Active Substance: LANSOPRAZOLE
  5. GASTROM [Concomitant]
     Active Substance: ECABET
  6. PLETAAL [Concomitant]
     Active Substance: CILOSTAZOL
  7. ASPARA-CA [Concomitant]
     Active Substance: CALCIUM ASPARTATE
  8. ONEALFA [Concomitant]
     Active Substance: ALFACALCIDOL
  9. BENET [Concomitant]
     Active Substance: RISEDRONATE SODIUM
  10. BAYASPIRIN [Concomitant]
     Active Substance: ASPIRIN
  11. HERBESSER [Concomitant]
     Active Substance: DILTIAZEM HYDROCHLORIDE
  12. MEMANTINE [Suspect]
     Active Substance: MEMANTINE
     Indication: DEMENTIA ALZHEIMER^S TYPE
     Dosage: 20 MG
     Route: 048

REACTIONS (2)
  - Seizure [Recovered/Resolved]
  - Loss of consciousness [Recovered/Resolved]

NARRATIVE: CASE EVENT DATE: 20130220
